FAERS Safety Report 25064076 (Version 1)
Quarter: 2025Q1

REPORT INFORMATION
  Report Type: Report from Study
  Country: US (occurrence: US)
  Receive Date: 20250311
  Receipt Date: 20250311
  Transmission Date: 20250409
  Serious: Yes (Other)
  Sender: BAYER HEALTHCARE PHARMACEUTICALS INC.
  Company Number: US-BAYER-2025A029892

PATIENT
  Age: 76 Year
  Sex: Female

DRUGS (1)
  1. KERENDIA [Suspect]
     Active Substance: FINERENONE
     Indication: Chronic kidney disease
     Dosage: 1 DF, QD
     Route: 048
     Dates: start: 202403, end: 20250217

REACTIONS (1)
  - Renal impairment [None]

NARRATIVE: CASE EVENT DATE: 20240325
